FAERS Safety Report 10779993 (Version 4)
Quarter: 2015Q2

REPORT INFORMATION
  Report Type: Spontaneous
  Country: IT (occurrence: IT)
  Receive Date: 20150210
  Receipt Date: 20150409
  Transmission Date: 20150821
  Serious: Yes (Death, Hospitalization)
  Sender: FDA-Public Use
  Company Number: IT-TEVA-538576ISR

PATIENT
  Age: 50 Year
  Sex: Female

DRUGS (2)
  1. DEPAKIN [Concomitant]
     Active Substance: VALPROATE SODIUM
     Indication: PRODUCT USED FOR UNKNOWN INDICATION
     Route: 048
  2. CITALOPRAM [Suspect]
     Active Substance: CITALOPRAM HYDROBROMIDE
     Indication: SUICIDE ATTEMPT
     Dosage: 2240 MG TOTAL
     Route: 048
     Dates: start: 20111203, end: 20111203

REACTIONS (3)
  - Suicide attempt [Fatal]
  - Torsade de pointes [Fatal]
  - Overdose [Fatal]

NARRATIVE: CASE EVENT DATE: 20111203
